FAERS Safety Report 6643058-1 (Version None)
Quarter: 2010Q1

REPORT INFORMATION
  Report Type: 
  Country: None (occurrence: None)
  Receive Date: 20100316
  Receipt Date: 20100304
  Transmission Date: 20100710
  Serious: Yes (Hospitalization, Other)
  Sender: FDA-Public Use
  Company Number: 230287K09CAN

PATIENT
  Sex: Female

DRUGS (9)
  1. REBIF [Suspect]
     Indication: RELAPSING-REMITTING MULTIPLE SCLEROSIS
     Dosage: 44 MCG; 22 MCG, 3 IN 1 WEEKS
     Dates: start: 20020903, end: 20080101
  2. REBIF [Suspect]
     Indication: RELAPSING-REMITTING MULTIPLE SCLEROSIS
     Dosage: 44 MCG; 22 MCG, 3 IN 1 WEEKS
     Dates: start: 20090209
  3. ALENDRONATE SODIUM [Concomitant]
  4. CRESTOR [Concomitant]
  5. TEGRETOL [Concomitant]
  6. SYNTHROID [Concomitant]
  7. CALCIUM (CALCIUM) [Concomitant]
  8. EXTRA STRENGTH TYLENOL [Concomitant]
  9. AD (NATURAL CHINESE PRODUCT) (PLANT ALKALOIDS AND OTHER NATURAL PRODUC [Concomitant]

REACTIONS (10)
  - ASTHENIA [None]
  - DIZZINESS [None]
  - GLAUCOMA [None]
  - HEADACHE [None]
  - INJECTION SITE MASS [None]
  - LIMB INJURY [None]
  - NAIL OPERATION [None]
  - PAIN [None]
  - SINUSITIS [None]
  - THYROID NEOPLASM [None]
